FAERS Safety Report 12549845 (Version 3)
Quarter: 2017Q1

REPORT INFORMATION
  Report Type: Other
  Country: US (occurrence: US)
  Receive Date: 20160712
  Receipt Date: 20170210
  Transmission Date: 20170428
  Serious: No
  Sender: FDA-Public Use
  Company Number: US-ACORDA-ACO_125859_2016

PATIENT
  Sex: Female

DRUGS (2)
  1. AMPYRA [Suspect]
     Active Substance: DALFAMPRIDINE
     Indication: GAIT DISTURBANCE
     Dosage: 10 MG, BID
     Route: 048
     Dates: start: 201606
  2. TECFIDERA [Suspect]
     Active Substance: DIMETHYL FUMARATE
     Indication: MULTIPLE SCLEROSIS
     Dosage: UNK
     Route: 065

REACTIONS (13)
  - Condition aggravated [Unknown]
  - General physical health deterioration [Unknown]
  - Anxiety [Unknown]
  - Depression [Unknown]
  - Malaise [Unknown]
  - Multiple sclerosis [Unknown]
  - Asthenia [Unknown]
  - Weight increased [Unknown]
  - Feeling abnormal [Unknown]
  - Drug ineffective [Unknown]
  - Mobility decreased [Unknown]
  - Gait disturbance [Unknown]
  - Lyme disease [Unknown]
